FAERS Safety Report 9921809 (Version 1)
Quarter: 2014Q1

REPORT INFORMATION
  Report Type: Spontaneous
  Country: FR (occurrence: FR)
  Receive Date: 20140225
  Receipt Date: 20140225
  Transmission Date: 20141002
  Serious: Yes (Hospitalization)
  Sender: FDA-Public Use
  Company Number: FR-PFIZER INC-2014048680

PATIENT
  Age: 18 Year
  Sex: Female

DRUGS (1)
  1. MINIDRIL [Suspect]
     Indication: CONTRACEPTION
     Dosage: UNK
     Route: 048
     Dates: start: 2013, end: 201312

REACTIONS (4)
  - Transient ischaemic attack [Recovered/Resolved]
  - Migraine with aura [Recovered/Resolved]
  - Hemianopia [Recovered/Resolved]
  - Headache [Recovered/Resolved]
